FAERS Safety Report 14968015 (Version 2)
Quarter: 2024Q3

REPORT INFORMATION
  Report Type: Spontaneous
  Country: FR (occurrence: FR)
  Receive Date: 20180604
  Receipt Date: 20240917
  Transmission Date: 20241016
  Serious: Yes (Hospitalization)
  Sender: MYLAN
  Company Number: FR-MYLANLABS-2018M1033819

PATIENT
  Age: 43 Year
  Sex: Male

DRUGS (1)
  1. VANCOMYCIN [Suspect]
     Active Substance: VANCOMYCIN
     Indication: Antibiotic therapy
     Dosage: 25 GRAM (25 G, 24 HOUR ADMINISTRATION)
     Route: 042

REACTIONS (6)
  - Product administration error [Recovered/Resolved]
  - Accidental overdose [Recovered/Resolved]
  - Toxicity to various agents [Recovered/Resolved]
  - Thrombophlebitis [Unknown]
  - Superficial vein thrombosis [Unknown]
  - Renal failure [Recovered/Resolved]
